FAERS Safety Report 7051052-4 (Version None)
Quarter: 2010Q4

REPORT INFORMATION
  Report Type: 
  Country: None (occurrence: None)
  Receive Date: 20101018
  Receipt Date: 20101018
  Transmission Date: 20110411
  Serious: No
  Sender: FDA-Public Use
  Company Number: None

PATIENT

DRUGS (1)
  1. TOPIRAMATE [Suspect]
     Indication: COMPLEX PARTIAL SEIZURES
     Dosage: 200MG TWICE DAILY

REACTIONS (2)
  - DYSPNOEA [None]
  - RASH [None]
